FAERS Safety Report 16208872 (Version 1)
Quarter: 2019Q2

REPORT INFORMATION
  Report Type: Spontaneous
  Country: US (occurrence: US)
  Receive Date: 20190417
  Receipt Date: 20190417
  Transmission Date: 20190711
  Serious: No
  Sender: FDA-Public Use
  Company Number: US-SA-2019SA101829

PATIENT
  Age: 70 Year
  Sex: Female

DRUGS (1)
  1. AMBIEN [Suspect]
     Active Substance: ZOLPIDEM TARTRATE
     Indication: TINNITUS
     Dosage: 2.5 MG, UNK
     Route: 065

REACTIONS (7)
  - Acne [Unknown]
  - Therapeutic response decreased [Unknown]
  - Agitation [Unknown]
  - Anger [Unknown]
  - Drug ineffective [Unknown]
  - Depression [Unknown]
  - Product used for unknown indication [Unknown]
